FAERS Safety Report 7391302-8 (Version None)
Quarter: 2011Q1

REPORT INFORMATION
  Report Type: 
  Country: None (occurrence: None)
  Receive Date: 20110324
  Receipt Date: 20110310
  Transmission Date: 20110831
  Serious: Yes (Other)
  Sender: FDA-Public Use
  Company Number: 1000017657

PATIENT
  Age: 30 Year
  Sex: Female
  Weight: 52 kg

DRUGS (4)
  1. ESCITALOPRAM OXALATE [Suspect]
     Indication: DEPRESSION
     Dosage: 15 MG (15 MG, 1 IN 1 D), ORAL; 5 MG (5 MG, 1 IN 1 D),ORAL
     Route: 048
     Dates: start: 20090901
  2. ESCITALOPRAM OXALATE [Suspect]
     Indication: ANXIETY
     Dosage: 15 MG (15 MG, 1 IN 1 D), ORAL; 5 MG (5 MG, 1 IN 1 D),ORAL
     Route: 048
     Dates: start: 20090901
  3. ESCITALOPRAM OXALATE [Suspect]
     Indication: DEPRESSION
     Dosage: 15 MG (15 MG, 1 IN 1 D), ORAL; 5 MG (5 MG, 1 IN 1 D),ORAL
     Route: 048
     Dates: end: 20090508
  4. ESCITALOPRAM OXALATE [Suspect]
     Indication: ANXIETY
     Dosage: 15 MG (15 MG, 1 IN 1 D), ORAL; 5 MG (5 MG, 1 IN 1 D),ORAL
     Route: 048
     Dates: end: 20090508

REACTIONS (3)
  - TOOTH INJURY [None]
  - PAIN IN JAW [None]
  - BRUXISM [None]
